FAERS Safety Report 8531954-X (Version None)
Quarter: 2012Q3

REPORT INFORMATION
  Report Type: 
  Country: None (occurrence: None)
  Receive Date: 20120723
  Receipt Date: 20120704
  Transmission Date: 20120928
  Serious: Yes (Death)
  Sender: FDA-Public Use
  Company Number: GB-009507513-1103GBR00133

PATIENT

DRUGS (2)
  1. EMEND [Suspect]
     Route: 048
  2. FENTANYL [Concomitant]

REACTIONS (1)
  - DEATH [None]
